FAERS Safety Report 25588451 (Version 2)
Quarter: 2025Q3

REPORT INFORMATION
  Report Type: Spontaneous
  Country: JP (occurrence: JP)
  Receive Date: 20250722
  Receipt Date: 20250811
  Transmission Date: 20251021
  Serious: Yes (Death, Life-Threatening)
  Sender: SANDOZ
  Company Number: JP-MLMSERVICE-20250710-PI572689-00117-1

PATIENT
  Age: 50 Year
  Sex: Male

DRUGS (15)
  1. CARBOPLATIN [Suspect]
     Active Substance: CARBOPLATIN
     Indication: Lymphoma
     Route: 065
  2. CARBOPLATIN [Suspect]
     Active Substance: CARBOPLATIN
     Indication: Angiocentric lymphoma
  3. CYCLOPHOSPHAMIDE [Suspect]
     Active Substance: CYCLOPHOSPHAMIDE
     Indication: Angiocentric lymphoma
     Route: 065
  4. DAUNORUBICIN HYDROCHLORIDE [Suspect]
     Active Substance: DAUNORUBICIN HYDROCHLORIDE
     Indication: Angiocentric lymphoma
     Route: 065
  5. DEXAMETHASONE [Suspect]
     Active Substance: DEXAMETHASONE
     Indication: Angiocentric lymphoma
     Route: 065
  6. DEXAMETHASONE [Suspect]
     Active Substance: DEXAMETHASONE
     Indication: Lymphoma
     Route: 065
  7. ETOPOSIDE [Suspect]
     Active Substance: ETOPOSIDE
     Indication: Angiocentric lymphoma
     Route: 065
  8. ETOPOSIDE [Suspect]
     Active Substance: ETOPOSIDE
     Indication: Lymphoma
     Route: 065
  9. IFOSFAMIDE [Suspect]
     Active Substance: IFOSFAMIDE
     Indication: Angiocentric lymphoma
     Route: 065
  10. IFOSFAMIDE [Suspect]
     Active Substance: IFOSFAMIDE
     Indication: Lymphoma
     Route: 065
  11. ASPARAGINASE [Suspect]
     Active Substance: ASPARAGINASE
     Indication: Lymphoma
     Route: 065
  12. METHOTREXATE [Suspect]
     Active Substance: METHOTREXATE
     Indication: Lymphoma
     Route: 065
  13. ONCOVIN [Suspect]
     Active Substance: VINCRISTINE SULFATE
     Indication: Angiocentric lymphoma
     Route: 065
  14. PREDNISOLONE [Suspect]
     Active Substance: PREDNISOLONE
     Indication: Angiocentric lymphoma
     Route: 065
  15. OXYGEN [Concomitant]
     Active Substance: OXYGEN
     Indication: Product used for unknown indication
     Route: 045

REACTIONS (5)
  - Tracheobronchitis [Fatal]
  - Bronchopulmonary aspergillosis [Fatal]
  - Acute respiratory distress syndrome [Fatal]
  - Febrile neutropenia [Fatal]
  - Hypercapnia [Fatal]
